FAERS Safety Report 25775485 (Version 2)
Quarter: 2025Q3

REPORT INFORMATION
  Report Type: Spontaneous
  Country: US (occurrence: US)
  Receive Date: 20250909
  Receipt Date: 20250916
  Transmission Date: 20251021
  Serious: No
  Sender: SANDOZ
  Company Number: US-SANDOZ-SDZ2025US063876

PATIENT
  Sex: Female

DRUGS (2)
  1. AZOPT [Suspect]
     Active Substance: BRINZOLAMIDE
     Indication: Product used for unknown indication
     Dosage: STRENGTH 1% 10ML
     Route: 065
  2. AZOPT [Suspect]
     Active Substance: BRINZOLAMIDE
     Route: 065

REACTIONS (7)
  - Eye pain [Unknown]
  - Ocular hyperaemia [Unknown]
  - Eye irritation [Unknown]
  - Product substitution issue [Unknown]
  - Suspected product quality issue [Unknown]
  - Wrong technique in product usage process [Unknown]
  - Ocular hyperaemia [Unknown]

NARRATIVE: CASE EVENT DATE: 20250101
